FAERS Safety Report 8851633 (Version 1)
Quarter: 2012Q4

REPORT INFORMATION
  Report Type: 
  Country: US (occurrence: US)
  Receive Date: 20121022
  Receipt Date: 20121022
  Transmission Date: 20130627
  Serious: Yes (Other)
  Sender: FDA-Public Use
  Company Number: US-ACCORD-014950

PATIENT
  Age: 13 Year
  Sex: Female

DRUGS (4)
  1. GEMCITABINE [Suspect]
     Indication: EWING^S SARCOMA
     Dosage: On day 1 and day 8 over 1 hour
  2. DOCETAXEL [Suspect]
     Indication: EWING^S SARCOMA
     Dosage: On day 8 over 1 hour
  3. DIPHENHYDRAMINE [Concomitant]
  4. BEVACIZUMAB [Suspect]
     Indication: EWING^S SARCOMA
     Dosage: On day 1 and day 15 over 90 minutes

REACTIONS (3)
  - Bone marrow failure [Unknown]
  - Epistaxis [Unknown]
  - Off label use [Unknown]
